FAERS Safety Report 8991441 (Version 2)
Quarter: 2013Q1

REPORT INFORMATION
  Report Type: Report from Study
  Country: US (occurrence: US)
  Receive Date: 20121231
  Receipt Date: 20130128
  Transmission Date: 20140127
  Serious: Yes (Hospitalization)
  Sender: FDA-Public Use
  Company Number: US-ROCHE-1139351

PATIENT
  Age: 17 Year
  Sex: Male

DRUGS (9)
  1. GRANISETRON [Suspect]
     Indication: PRODUCT USED FOR UNKNOWN INDICATION
     Route: 065
  2. BORTEZOMIB [Suspect]
     Indication: ACUTE MYELOID LEUKAEMIA
     Dosage: LAST DOSE PRIOR TO SAE ON 02/AUG/2012
     Route: 040
     Dates: start: 20120725
  3. BORTEZOMIB [Suspect]
     Route: 065
     Dates: start: 20120828
  4. CYTARABINE [Suspect]
     Indication: ACUTE MYELOID LEUKAEMIA
     Dosage: LAST DOSE PRIOR TO SAE ON 04/AUG/2012
     Route: 042
     Dates: start: 20120725
  5. CYTARABINE [Suspect]
     Route: 037
     Dates: start: 20120725, end: 20120725
  6. DAUNORUBICIN [Suspect]
     Indication: ACUTE MYELOID LEUKAEMIA
     Dosage: LAST DOSE PRIOR TO SAE ON 29/JUL/2012
     Route: 042
     Dates: start: 20120725
  7. ETOPOSIDE [Suspect]
     Indication: ACUTE MYELOID LEUKAEMIA
     Dosage: LAST DOSE PRIOR TO SAE ON 29/JUL/2012
     Route: 042
     Dates: start: 20120725
  8. HYDROCHLOROTHIAZIDE\LISINOPRIL [Suspect]
     Indication: PRODUCT USED FOR UNKNOWN INDICATION
     Route: 065
  9. LYRICA [Concomitant]

REACTIONS (6)
  - Alanine aminotransferase increased [Not Recovered/Not Resolved]
  - Aspartate aminotransferase increased [Not Recovered/Not Resolved]
  - Peripheral sensory neuropathy [Not Recovered/Not Resolved]
  - Hypertension [Not Recovered/Not Resolved]
  - Left ventricular dysfunction [Not Recovered/Not Resolved]
  - Left ventricular dysfunction [Not Recovered/Not Resolved]
